FAERS Safety Report 14540808 (Version 1)
Quarter: 2018Q1

REPORT INFORMATION
  Report Type: Spontaneous
  Country: US (occurrence: US)
  Receive Date: 20180216
  Receipt Date: 20180216
  Transmission Date: 20180509
  Serious: Yes (Life-Threatening, Hospitalization, Other)
  Sender: FDA-Public Use
  Company Number: US-OTSUKA-KJ20041089

PATIENT
  Age: 19 Year
  Sex: Male
  Weight: 82.1 kg

DRUGS (8)
  1. ABILIFY [Suspect]
     Active Substance: ARIPIPRAZOLE
     Indication: SCHIZOPHRENIA
     Dosage: 7.5 MG, UNK
     Route: 048
     Dates: start: 20040323, end: 20040324
  2. RISPERIDONE. [Concomitant]
     Active Substance: RISPERIDONE
     Indication: PRODUCT USED FOR UNKNOWN INDICATION
     Dosage: 2 MG, QD
     Route: 065
  3. BENZTROPINE. [Concomitant]
     Active Substance: BENZTROPINE
     Indication: DYSTONIA
     Dosage: 1 MG, UNK
     Route: 042
     Dates: start: 20040412, end: 20040419
  4. ABILIFY [Suspect]
     Active Substance: ARIPIPRAZOLE
     Dosage: 15 MG, UNK
     Route: 048
     Dates: start: 20040325, end: 20040405
  5. BENZTROPINE. [Concomitant]
     Active Substance: BENZTROPINE
     Dosage: UNK
     Route: 042
  6. BENZTROPINE. [Concomitant]
     Active Substance: BENZTROPINE
     Indication: DYSKINESIA
     Dosage: 1.5 MG, UNK
     Route: 042
     Dates: start: 20040421
  7. RISPERIDONE. [Concomitant]
     Active Substance: RISPERIDONE
     Dosage: UNK
     Route: 065
  8. ESKALITH [Concomitant]
     Active Substance: LITHIUM CARBONATE
     Indication: PRODUCT USED FOR UNKNOWN INDICATION
     Dosage: UNK
     Route: 065

REACTIONS (5)
  - Pneumonia aspiration [Not Recovered/Not Resolved]
  - Metabolic encephalopathy [Not Recovered/Not Resolved]
  - Neuroleptic malignant syndrome [Not Recovered/Not Resolved]
  - Respiratory failure [Not Recovered/Not Resolved]
  - Candida infection [Not Recovered/Not Resolved]

NARRATIVE: CASE EVENT DATE: 20040405
